FAERS Safety Report 8108548 (Version 4)
Quarter: 2012Q4

REPORT INFORMATION
  Report Type: 
  Country: US (occurrence: US)
  Receive Date: 20110826
  Receipt Date: 20121127
  Transmission Date: 20130627
  Serious: Yes (Death, Hospitalization)
  Sender: FDA-Public Use
  Company Number: US-B.I. PHARMACEUTICALS,INC./RIDGEFIELD-2011-BP-20670BP

PATIENT
  Age: 67 None
  Sex: Male
  Weight: 116.57 kg

DRUGS (14)
  1. PRADAXA [Suspect]
     Indication: CEREBROVASCULAR ACCIDENT PROPHYLAXIS
     Dosage: 150 mg
     Route: 048
     Dates: start: 201106
  2. PRADAXA [Suspect]
     Indication: ATRIAL FIBRILLATION
     Dosage: 300 mg
     Route: 048
  3. JANTOVEN (WAYFARIN) [Concomitant]
     Dosage: 10 mg
     Dates: end: 20110628
  4. NIACIN [Concomitant]
     Dosage: 500 mg
  5. POTASSIUM CHLORIDE [Concomitant]
     Dosage: 10 mEq
     Dates: start: 200808
  6. TOPROL (METOPROLOL) [Concomitant]
     Dosage: 200 mg
  7. METFORMIN [Concomitant]
     Dosage: 1500 mg
  8. LISINOPRIL [Concomitant]
     Dosage: 10 mg
     Dates: start: 200808
  9. GLIMEPIRIDE [Concomitant]
     Dosage: 8 mg
     Dates: start: 20080822
  10. LIPITOR [Concomitant]
     Dosage: 20 mg
     Dates: start: 200808
  11. LASIX (FUROSEMIDE) [Concomitant]
     Dosage: 40 mg
     Dates: start: 200808
  12. ONGLYZA [Concomitant]
     Dosage: 5 mg
  13. LUTEIN [Concomitant]
     Dosage: 20 mg
  14. FISH OIL [Concomitant]
     Dosage: 200 mg

REACTIONS (2)
  - Cerebral haemorrhage [Fatal]
  - Plantar fasciitis [Unknown]
